FAERS Safety Report 23845850 (Version 2)
Quarter: 2024Q2

REPORT INFORMATION
  Report Type: Spontaneous
  Country: US (occurrence: US)
  Receive Date: 20240512
  Receipt Date: 20240513
  Transmission Date: 20240716
  Serious: Yes (Hospitalization)
  Sender: FDA-Public Use
  Company Number: US-ABBVIE-5754407

PATIENT
  Sex: Female

DRUGS (1)
  1. BOTOX COSMETIC [Suspect]
     Active Substance: ONABOTULINUMTOXINA
     Indication: Skin wrinkling
     Dosage: TIME INTERVAL: AS NECESSARY: CHIN
     Route: 030
     Dates: start: 20240411, end: 20240411

REACTIONS (10)
  - Influenza [Recovered/Resolved]
  - Oral herpes [Recovered/Resolved]
  - Fatigue [Unknown]
  - Sinusitis [Unknown]
  - Malaise [Unknown]
  - Herpes ophthalmic [Not Recovered/Not Resolved]
  - Pneumonia [Unknown]
  - Lip dry [Recovered/Resolved]
  - Lip swelling [Unknown]
  - Lung disorder [Unknown]

NARRATIVE: CASE EVENT DATE: 20240101
